FAERS Safety Report 7902666-8 (Version None)
Quarter: 2011Q4

REPORT INFORMATION
  Report Type: 
  Country: None (occurrence: None)
  Receive Date: 20111108
  Receipt Date: 20111031
  Transmission Date: 20120403
  Serious: Yes (Hospitalization)
  Sender: FDA-Public Use
  Company Number: JP-MERCK-1111USA00293

PATIENT
  Age: 88 Year
  Sex: Female

DRUGS (1)
  1. JANUVIA [Suspect]
     Route: 048
     Dates: start: 20110401

REACTIONS (4)
  - HEPATIC FUNCTION ABNORMAL [None]
  - BLOOD GLUCOSE INCREASED [None]
  - PANCREATITIS [None]
  - RENAL IMPAIRMENT [None]
